FAERS Safety Report 4653923-2 (Version None)
Quarter: 2005Q2

REPORT INFORMATION
  Report Type: 
  Country: None (occurrence: None)
  Receive Date: 20050504
  Receipt Date: 20050222
  Transmission Date: 20051028
  Serious: No
  Sender: FDA-Public Use
  Company Number: 10635

PATIENT

DRUGS (3)
  1. METHOTREXATE [Suspect]
  2. DOXORUBICIN [Suspect]
  3. VINCRISTINE [Suspect]

REACTIONS (2)
  - CEREBELLAR HYPOPLASIA [None]
  - TRANSMISSION OF DRUG VIA SEMEN [None]
